FAERS Safety Report 6796387-5 (Version None)
Quarter: 2010Q2

REPORT INFORMATION
  Report Type: 
  Country: None (occurrence: None)
  Receive Date: 20100622
  Receipt Date: 20100611
  Transmission Date: 20101027
  Serious: Yes (Death)
  Sender: FDA-Public Use
  Company Number: JP-2010-1268

PATIENT
  Sex: Female

DRUGS (5)
  1. NAVELBINE [Suspect]
     Indication: BREAST CANCER
     Dosage: 35 MG IV
     Route: 042
     Dates: start: 20100511, end: 20100518
  2. DECADRON [Concomitant]
  3. CELECOX [Concomitant]
  4. PRIMPERAN TAB [Concomitant]
  5. OXYCONTIN [Concomitant]

REACTIONS (1)
  - PULMONARY INFARCTION [None]
